FAERS Safety Report 25111653 (Version 1)
Quarter: 2025Q1

REPORT INFORMATION
  Report Type: Spontaneous
  Country: US (occurrence: US)
  Receive Date: 20250324
  Receipt Date: 20250324
  Transmission Date: 20250409
  Serious: No
  Sender: Norvium Bioscience
  Company Number: US-Norvium Bioscience LLC-079769

PATIENT
  Sex: Male
  Weight: 106.59 kg

DRUGS (3)
  1. TORSEMIDE [Suspect]
     Active Substance: TORSEMIDE
     Indication: Product used for unknown indication
  2. NITROSTAT [Concomitant]
     Active Substance: NITROGLYCERIN
     Indication: Product used for unknown indication
     Route: 060
  3. CRESTOR [Concomitant]
     Active Substance: ROSUVASTATIN CALCIUM
     Indication: Product used for unknown indication
     Dosage: TAKE 1 TABLET
     Route: 048

REACTIONS (1)
  - Weight fluctuation [Unknown]
